FAERS Safety Report 18658866 (Version 2)
Quarter: 2021Q1

REPORT INFORMATION
  Report Type: Spontaneous
  Country: US (occurrence: US)
  Receive Date: 20201224
  Receipt Date: 20210108
  Transmission Date: 20210419
  Serious: Yes (Hospitalization, Other)
  Sender: FDA-Public Use
  Company Number: US-ALKEM LABORATORIES LIMITED-US-ALKEM-2020-08995

PATIENT
  Age: 55 Year
  Sex: Female

DRUGS (1)
  1. METHADONE HYDROCHLORIDE. [Suspect]
     Active Substance: METHADONE HYDROCHLORIDE
     Indication: PRODUCT USED FOR UNKNOWN INDICATION
     Dosage: UNK
     Route: 065

REACTIONS (9)
  - Posterior reversible encephalopathy syndrome [Unknown]
  - Suicide attempt [Unknown]
  - Therapeutic response decreased [Unknown]
  - Acute kidney injury [Unknown]
  - Overdose [Unknown]
  - Visual acuity reduced [Unknown]
  - Pyrexia [Unknown]
  - Leukocytosis [Unknown]
  - Generalised tonic-clonic seizure [Unknown]
